FAERS Safety Report 12208795 (Version 1)
Quarter: 2016Q1

REPORT INFORMATION
  Report Type: Spontaneous
  Country: US (occurrence: US)
  Receive Date: 20160324
  Receipt Date: 20160324
  Transmission Date: 20160526
  Serious: No
  Sender: FDA-Public Use
  Company Number: US-SHIONOGI, INC-2015001205

PATIENT
  Age: 62 Year
  Sex: Female

DRUGS (5)
  1. OSPHENA [Suspect]
     Active Substance: OSPEMIFENE
     Dosage: UNK, DAILY
     Route: 065
  2. PROBIOTIC                          /06395501/ [Concomitant]
     Active Substance: BIFIDOBACTERIUM ANIMALIS SUBSP. LACTIS
     Indication: CONSTIPATION
  3. OSPHENA [Suspect]
     Active Substance: OSPEMIFENE
     Indication: VAGINAL PESSARY INSERTION
     Dosage: 60 MG, QD
     Route: 048
     Dates: start: 201510, end: 20151106
  4. OSPHENA [Suspect]
     Active Substance: OSPEMIFENE
     Indication: OFF LABEL USE
     Dosage: 60 MG, QOD
     Route: 048
     Dates: start: 20151106
  5. PROBIOTIC                          /06395501/ [Concomitant]
     Active Substance: BIFIDOBACTERIUM ANIMALIS SUBSP. LACTIS
     Indication: ABDOMINAL DISTENSION
     Dosage: UNK
     Route: 065
     Dates: start: 2015

REACTIONS (6)
  - Rash [Recovering/Resolving]
  - Off label use [Unknown]
  - Vaginal discharge [Unknown]
  - Breast tenderness [Not Recovered/Not Resolved]
  - Skin irritation [Unknown]
  - Inappropriate schedule of drug administration [Unknown]

NARRATIVE: CASE EVENT DATE: 201510
